FAERS Safety Report 10623471 (Version 1)
Quarter: 2014Q4

REPORT INFORMATION
  Report Type: Report from Study
  Country: US (occurrence: US)
  Receive Date: 20141203
  Receipt Date: 20141203
  Transmission Date: 20150529
  Serious: Yes (Hospitalization)
  Sender: FDA-Public Use
  Company Number: US-009507513-1412USA000944

PATIENT
  Age: 40 Year

DRUGS (3)
  1. DOXIL [Suspect]
     Active Substance: DOXORUBICIN HYDROCHLORIDE
     Indication: PLASMA CELL MYELOMA
     Dosage: 30 MG/M2, CYCLICAL (DAY 4 EACH CYCLE)
     Route: 042
     Dates: start: 20111103, end: 20120919
  2. VELCADE [Suspect]
     Active Substance: BORTEZOMIB
     Indication: PLASMA CELL MYELOMA
     Dosage: 1.3 MG/M2, CYCLICAL (DAYS 1, 4, 8, 11, EVERY 3 WEEKS)
     Route: 042
     Dates: start: 20111031, end: 20120919
  3. DECADRON [Suspect]
     Active Substance: DEXAMETHASONE
     Indication: PLASMA CELL MYELOMA
     Dosage: 10 MG, CYCLICAL (DAY 4 EACH CYCLE)
     Route: 042
     Dates: start: 20111103, end: 20130716

REACTIONS (4)
  - Abdominal pain [Unknown]
  - Upper gastrointestinal haemorrhage [Unknown]
  - Iron deficiency [Unknown]
  - Anaemia [Unknown]

NARRATIVE: CASE EVENT DATE: 20120807
